FAERS Safety Report 12405131 (Version 1)
Quarter: 2016Q2

REPORT INFORMATION
  Report Type: Spontaneous
  Country: US (occurrence: US)
  Receive Date: 20160525
  Receipt Date: 20160525
  Transmission Date: 20160815
  Serious: No
  Sender: FDA-Public Use
  Company Number: US-ACTELION-A-NJ2016-129727

PATIENT
  Age: 79 Year
  Sex: Female

DRUGS (1)
  1. OPSUMIT [Suspect]
     Active Substance: MACITENTAN
     Indication: PULMONARY HYPERTENSION
     Dosage: 10 MG, QD
     Route: 048
     Dates: start: 20151230

REACTIONS (4)
  - Nasal congestion [Unknown]
  - Pulmonary congestion [Unknown]
  - Headache [Recovered/Resolved]
  - No therapeutic response [Unknown]

NARRATIVE: CASE EVENT DATE: 20160104
